FAERS Safety Report 21223391 (Version 1)
Quarter: 2022Q3

REPORT INFORMATION
  Report Type: Spontaneous
  Country: CN (occurrence: CN)
  Receive Date: 20220817
  Receipt Date: 20220817
  Transmission Date: 20221027
  Serious: Yes (Other)
  Sender: FDA-Public Use
  Company Number: CN-PFIZER INC-PV202200042796

PATIENT
  Age: 60 Year
  Sex: Female
  Weight: 50 kg

DRUGS (4)
  1. XELJANZ [Suspect]
     Active Substance: TOFACITINIB CITRATE
     Indication: Systemic scleroderma
     Dosage: 5 MG, 2X/DAY
     Route: 048
     Dates: start: 20220601, end: 20220811
  2. XELJANZ [Suspect]
     Active Substance: TOFACITINIB CITRATE
     Indication: Immunosuppression
  3. XELJANZ [Suspect]
     Active Substance: TOFACITINIB CITRATE
     Indication: Mineral supplementation
  4. XELJANZ [Suspect]
     Active Substance: TOFACITINIB CITRATE
     Indication: Symptomatic treatment

REACTIONS (1)
  - Myocardial necrosis marker increased [Recovering/Resolving]

NARRATIVE: CASE EVENT DATE: 20220811
